FAERS Safety Report 6413294-8 (Version None)
Quarter: 2009Q4

REPORT INFORMATION
  Report Type: 
  Country: None (occurrence: None)
  Receive Date: 20091026
  Receipt Date: 20091015
  Transmission Date: 20100525
  Serious: Yes (Death)
  Sender: FDA-Public Use
  Company Number: US-ROCHE-663145

PATIENT
  Sex: Female

DRUGS (2)
  1. XELODA [Suspect]
     Indication: GALLBLADDER CANCER
     Route: 048
  2. XELODA [Suspect]
     Route: 048
     Dates: start: 20090818

REACTIONS (1)
  - DEATH [None]
